FAERS Safety Report 20590272 (Version 3)
Quarter: 2022Q3

REPORT INFORMATION
  Report Type: Report from Study
  Country: CA (occurrence: CA)
  Receive Date: 20220314
  Receipt Date: 20220816
  Transmission Date: 20221027
  Serious: Yes (Other)
  Sender: FDA-Public Use
  Company Number: CA-JNJFOC-20220322645

PATIENT
  Age: 20 Year
  Sex: Male
  Weight: 53.9 kg

DRUGS (4)
  1. REMICADE [Suspect]
     Active Substance: INFLIXIMAB
     Indication: Crohn^s disease
     Route: 042
     Dates: start: 20190905, end: 20220119
  2. PREDNISONE [Concomitant]
     Active Substance: PREDNISONE
     Indication: Product used for unknown indication
     Dosage: RESTARTED STEROIDS 30 MG ONCE PER DAY A MONTH AGO (FEB/2022)
     Route: 065
  3. CEFADROXIL [Concomitant]
     Active Substance: CEFADROXIL
     Indication: Infection prophylaxis
     Dosage: FOR 10 DAYS.
     Route: 065
     Dates: start: 20220718
  4. AXATILIMAB [Concomitant]
     Active Substance: AXATILIMAB
     Indication: Graft versus host disease
     Route: 065
     Dates: start: 20220315

REACTIONS (3)
  - Clostridium difficile infection [Unknown]
  - Complication associated with device [Unknown]
  - SARS-CoV-2 test positive [Unknown]
